FAERS Safety Report 6855819-4 (Version None)
Quarter: 2010Q3

REPORT INFORMATION
  Report Type: 
  Country: None (occurrence: None)
  Receive Date: 20100715
  Receipt Date: 20100715
  Transmission Date: 20110219
  Serious: No
  Sender: FDA-Public Use
  Company Number: None

PATIENT
  Sex: Female
  Weight: 72.1219 kg

DRUGS (2)
  1. DILTIAZEM HCL [Suspect]
     Indication: HYPERTENSION
     Dosage: DILTIAZEM 240 MG 1-1XD ORAL
     Route: 048
     Dates: start: 20091101, end: 20100201
  2. DILTIAZEM HCL [Suspect]
     Indication: MUSCLE SPASMS
     Dosage: DILTIAZEM 240 MG 1-1XD ORAL
     Route: 048
     Dates: start: 20091101, end: 20100201

REACTIONS (1)
  - OEDEMA PERIPHERAL [None]
